FAERS Safety Report 8430536-8 (Version None)
Quarter: 2012Q2

REPORT INFORMATION
  Report Type: 
  Country: None (occurrence: None)
  Receive Date: 20120612
  Receipt Date: 20120605
  Transmission Date: 20120825
  Serious: Yes (Hospitalization)
  Sender: FDA-Public Use
  Company Number: US-GLAXOSMITHKLINE-A0980226A

PATIENT
  Age: 82 Year
  Sex: Female

DRUGS (7)
  1. CRANBERRY [Concomitant]
  2. ASPIRIN [Concomitant]
  3. COREG CR [Suspect]
     Indication: HYPERTENSION
     Dosage: 40MG PER DAY
     Route: 048
     Dates: start: 20100101
  4. DIOVAN [Concomitant]
  5. PREMARIN [Concomitant]
  6. HYDROCHLOROTHIAZIDE [Concomitant]
  7. VITAMIN A + D [Concomitant]

REACTIONS (1)
  - CORONARY ARTERY BYPASS [None]
